FAERS Safety Report 9617158 (Version 1)
Quarter: 2013Q4

REPORT INFORMATION
  Report Type: Spontaneous
  Country: US (occurrence: None)
  Receive Date: 20131011
  Receipt Date: 20131011
  Transmission Date: 20140711
  Serious: No
  Sender: FDA-Public Use
  Company Number: None

PATIENT
  Age: 51 Year
  Sex: Female
  Weight: 69.85 kg

DRUGS (2)
  1. CLOPIDOGREL [Suspect]
     Indication: CORONARY ARTERY DISEASE
     Dosage: 1PILL, ONCE DAILY, TAKEN BY MOUTH
     Route: 048
     Dates: start: 20130905, end: 20130919
  2. CLOPIDOGREL [Suspect]
     Indication: RENAL ARTERY STENOSIS
     Dosage: 1PILL, ONCE DAILY, TAKEN BY MOUTH
     Route: 048
     Dates: start: 20130905, end: 20130919

REACTIONS (5)
  - Product odour abnormal [None]
  - Dysgeusia [None]
  - Breath odour [None]
  - Epistaxis [None]
  - Skin haemorrhage [None]
